FAERS Safety Report 8924869 (Version 2)
Quarter: 2013Q2

REPORT INFORMATION
  Report Type: Spontaneous
  Country: GB (occurrence: GB)
  Receive Date: 20121126
  Receipt Date: 20130628
  Transmission Date: 20140414
  Serious: Yes (Disabling)
  Sender: FDA-Public Use
  Company Number: GB-BAUSCH-BL-2012-001763

PATIENT
  Age: 48 Year
  Sex: Male

DRUGS (10)
  1. PREDNISOLONE [Suspect]
     Indication: PEMPHIGUS
     Dosage: 10 MG 2/1DAYS
     Route: 048
     Dates: start: 20120518
  2. PREDNISOLONE [Suspect]
     Dosage: 40 MG 1/1DAYS
     Route: 048
     Dates: start: 20120518
  3. COLECALCIFEROL [Suspect]
     Indication: OSTEOPOROSIS PROPHYLAXIS
     Dosage: 1DF 2/1DAYS
     Route: 048
     Dates: start: 20120414
  4. ALENDRONIC ACID [Suspect]
     Indication: OSTEOPOROSIS PROPHYLAXIS
     Dosage: 70 MG 1/1WEEKS
     Route: 048
     Dates: start: 20120528
  5. AZATHIOPRINE [Suspect]
     Indication: PEMPHIGUS
     Dosage: 75 MG 2/1DAYS
     Route: 048
     Dates: start: 20120607
  6. LANSOPRAZOLE [Suspect]
     Indication: PROPHYLAXIS AGAINST GASTROINTESTINAL ULCER
     Dosage: 15 MG 1/1DAYS
     Route: 048
     Dates: start: 20120528
  7. NO DRUG NAME [Concomitant]
     Indication: PEMPHIGUS
     Dosage: 10 ML 2/1/DAYS
     Route: 048
     Dates: start: 20120518, end: 20120601
  8. NO DRUG NAME [Concomitant]
     Route: 061
     Dates: start: 20120711
  9. NO DRUG NAME [Concomitant]
     Route: 061
     Dates: start: 20120616
  10. NO DRUG NAME [Concomitant]
     Route: 061
     Dates: start: 20120711

REACTIONS (3)
  - Trismus [Unknown]
  - Temporomandibular joint syndrome [Unknown]
  - Tremor [Unknown]
